FAERS Safety Report 16810774 (Version 2)
Quarter: 2019Q4

REPORT INFORMATION
  Report Type: Spontaneous
  Country: FR (occurrence: FR)
  Receive Date: 20190916
  Receipt Date: 20191206
  Transmission Date: 20200122
  Serious: Yes (Hospitalization, Other)
  Sender: FDA-Public Use
  Company Number: FR-PFIZER INC-2019392543

PATIENT
  Age: 62 Year
  Sex: Female

DRUGS (2)
  1. DALACINE [Suspect]
     Active Substance: CLINDAMYCIN
     Indication: INTERVERTEBRAL DISCITIS
     Dosage: 2400 MG, 1X/DAY
     Route: 048
     Dates: start: 20190730, end: 20190818
  2. OFLOCET [OFLOXACIN] [Suspect]
     Active Substance: OFLOXACIN
     Indication: INTERVERTEBRAL DISCITIS
     Dosage: 3 DF, 1X/DAY
     Route: 048
     Dates: start: 20190730, end: 20190818

REACTIONS (4)
  - Hypotension [Recovered/Resolved]
  - Off label use [Unknown]
  - Vomiting [Recovered/Resolved]
  - Acute kidney injury [Recovered/Resolved]

NARRATIVE: CASE EVENT DATE: 20190818
